FAERS Safety Report 9449300 (Version 2)
Quarter: 2013Q3

REPORT INFORMATION
  Report Type: Spontaneous
  Country: US (occurrence: US)
  Receive Date: 20130808
  Receipt Date: 20130916
  Transmission Date: 20140515
  Serious: Yes (Hospitalization, Other)
  Sender: FDA-Public Use
  Company Number: US-PFIZER INC-2013230398

PATIENT
  Age: 57 Year
  Sex: Female
  Weight: 65.31 kg

DRUGS (6)
  1. REVATIO [Suspect]
     Indication: PULMONARY HYPERTENSION
     Dosage: 20 MG, 3X/DAY
     Route: 048
     Dates: start: 20090712
  2. ADVAIR [Concomitant]
     Indication: DYSPNOEA
     Dosage: UNK
  3. WARFARIN [Concomitant]
     Dosage: 5 MG, UNK
  4. AMIODARONE [Concomitant]
     Dosage: 200 MG, UNK
  5. FUROSEMIDE [Concomitant]
     Dosage: 60 MG, UNK
  6. METOPROLOL [Concomitant]
     Dosage: 75 MG, UNK

REACTIONS (8)
  - Cardiac failure congestive [Unknown]
  - Dehydration [Unknown]
  - Cardiomyopathy [Recovered/Resolved with Sequelae]
  - Palpitations [Recovered/Resolved with Sequelae]
  - Arrhythmia [Recovered/Resolved with Sequelae]
  - Cor pulmonale [Recovered/Resolved with Sequelae]
  - Renal failure acute [Recovered/Resolved with Sequelae]
  - Hyperkalaemia [Recovered/Resolved with Sequelae]
